FAERS Safety Report 6155725-7 (Version None)
Quarter: 2009Q2

REPORT INFORMATION
  Report Type: 
  Country: None (occurrence: None)
  Receive Date: 20090415
  Receipt Date: 20090407
  Transmission Date: 20091009
  Serious: Yes (Death, Life-Threatening, Hospitalization)
  Sender: FDA-Public Use
  Company Number: B0568905A

PATIENT
  Age: 67 Year
  Sex: Male
  Weight: 55 kg

DRUGS (10)
  1. ARIXTRA [Suspect]
     Indication: PHLEBITIS
     Dosage: 7.5MG PER DAY
     Route: 058
     Dates: start: 20090211, end: 20090311
  2. ARANESP [Suspect]
     Route: 058
     Dates: start: 20090107, end: 20090315
  3. TAHOR [Concomitant]
     Route: 065
  4. DOLIPRANE [Concomitant]
     Route: 065
  5. TRAMADOL HCL [Concomitant]
     Route: 065
  6. PREDNISOLONE [Concomitant]
     Route: 065
  7. GEMZAR [Concomitant]
     Route: 065
  8. MOTILIUM [Concomitant]
     Route: 065
  9. ROCEPHIN [Concomitant]
     Route: 065
  10. OFLOXACIN [Concomitant]
     Route: 065

REACTIONS (5)
  - C-REACTIVE PROTEIN INCREASED [None]
  - CHEST PAIN [None]
  - INCORRECT DRUG ADMINISTRATION DURATION [None]
  - PULMONARY EMBOLISM [None]
  - PYREXIA [None]
